FAERS Safety Report 12374938 (Version 3)
Quarter: 2016Q2

REPORT INFORMATION
  Report Type: Spontaneous
  Country: US (occurrence: US)
  Receive Date: 20160517
  Receipt Date: 20160629
  Transmission Date: 20160815
  Serious: Yes (Hospitalization)
  Sender: FDA-Public Use
  Company Number: US-AUROBINDO-AUR-APL-2016-05955

PATIENT
  Sex: Female

DRUGS (2)
  1. FLUCONAZOLE TABLETS 150 MG [Suspect]
     Active Substance: FLUCONAZOLE
     Indication: FUNGAL INFECTION
     Dosage: 150 MG, UNK
     Route: 048
     Dates: start: 20160504, end: 20160504
  2. CIPROFLOXACIN                      /00697202/ [Concomitant]
     Active Substance: CIPROFLOXACIN HYDROCHLORIDE
     Indication: URINARY TRACT INFECTION
     Dosage: 500 MG, UNK
     Route: 065
     Dates: end: 20160504

REACTIONS (6)
  - Paraesthesia [Unknown]
  - Hypersensitivity [Unknown]
  - Urticaria [Unknown]
  - Dysphagia [Unknown]
  - Dyspnoea [Unknown]
  - Product solubility abnormal [Unknown]
